FAERS Safety Report 22537246 (Version 8)
Quarter: 2024Q1

REPORT INFORMATION
  Report Type: Spontaneous
  Country: US (occurrence: US)
  Receive Date: 20230608
  Receipt Date: 20240122
  Transmission Date: 20240409
  Serious: No
  Sender: FDA-Public Use
  Company Number: US-PFIZER INC-202300209238

PATIENT
  Age: 11 Year
  Sex: Female
  Weight: 31.75 kg

DRUGS (4)
  1. SOMATROPIN [Suspect]
     Active Substance: SOMATROPIN
     Indication: Blood growth hormone abnormal
     Dosage: 2 ML, DAILY (INJECTED NIGHTLY)
     Dates: start: 201706
  2. SOMATROPIN [Suspect]
     Active Substance: SOMATROPIN
     Indication: Growth hormone deficiency
     Dosage: 1.4 MG, DAILY (INJECTED NIGHTLY)
     Dates: start: 202302, end: 2023
  3. SOMATROPIN [Suspect]
     Active Substance: SOMATROPIN
     Dosage: UNK
  4. NORDITROPIN [Suspect]
     Active Substance: SOMATROPIN
     Indication: Blood growth hormone abnormal
     Dosage: 1.6MG INJECTED EVERY DAY
     Dates: start: 20170804

REACTIONS (8)
  - Product quality issue [Unknown]
  - Poor quality device used [Unknown]
  - Accidental exposure to product [Unknown]
  - Exposure via skin contact [Unknown]
  - Underdose [Unknown]
  - Device leakage [Unknown]
  - Drug dose omission by device [Unknown]
  - Product substitution [Unknown]
